FAERS Safety Report 16150838 (Version 2)
Quarter: 2019Q2

REPORT INFORMATION
  Report Type: Spontaneous
  Country: BR (occurrence: BR)
  Receive Date: 20190403
  Receipt Date: 20190524
  Transmission Date: 20190711
  Serious: Yes (Other)
  Sender: FDA-Public Use
  Company Number: BR-009507513-1904BRA001055

PATIENT
  Age: 92 Year
  Sex: Female
  Weight: 55 kg

DRUGS (6)
  1. JANUVIA [Suspect]
     Active Substance: SITAGLIPTIN PHOSPHATE
     Indication: TYPE 2 DIABETES MELLITUS
     Dosage: 2 TIMES A DAY, 1 TABLET IN THE MORNING AND 1 TABLET IN THE EVENING, TOTALING 100 MG DAILY
     Route: 048
     Dates: start: 2009
  2. SIMVASTATIN. [Concomitant]
     Active Substance: SIMVASTATIN
     Indication: BLOOD CHOLESTEROL INCREASED
     Dosage: 1 TABLET, 20 MILLIGRAM, OVERNIGHT
     Dates: start: 1999
  3. AMARYL [Concomitant]
     Active Substance: GLIMEPIRIDE
     Indication: DIABETES MELLITUS
     Dosage: 6 MILLIGRAM, FASTED
  4. CLOPIDOGREL [Concomitant]
     Active Substance: CLOPIDOGREL BISULFATE
     Indication: CARDIAC DISORDER
     Dosage: ONE TABLET, 75 MILLIGRAM, ONCE DAILY
  5. TENSALIV [Concomitant]
     Active Substance: AMLODIPINE BESYLATE
     Indication: HYPERTENSION
     Dosage: 1 TABLET, 5 MILLIGRAM, IN THE MORNING
     Dates: start: 1999
  6. MONOCORDIL [Concomitant]
     Active Substance: ISOSORBIDE MONONITRATE
     Indication: CARDIAC DISORDER
     Dosage: 1 TABLET, 20 MILLIGRAM, TWICE A DAY
     Dates: start: 1999

REACTIONS (5)
  - Inappropriate schedule of product administration [Unknown]
  - Depression [Unknown]
  - Osteopenia [Recovered/Resolved]
  - Product blister packaging issue [Unknown]
  - Dementia Alzheimer^s type [Unknown]

NARRATIVE: CASE EVENT DATE: 2009
